FAERS Safety Report 8021136-2 (Version None)
Quarter: 2012Q1

REPORT INFORMATION
  Report Type: 
  Country: None (occurrence: None)
  Receive Date: 20120104
  Receipt Date: 20111229
  Transmission Date: 20120608
  Serious: No
  Sender: FDA-Public Use
  Company Number: US-PFIZER INC-2011292787

PATIENT
  Sex: Male
  Weight: 61.224 kg

DRUGS (3)
  1. VIAGRA [Suspect]
     Dosage: 25 MG, UNK
  2. VIAGRA [Suspect]
     Dosage: 75 MG, UNK
  3. VIAGRA [Suspect]
     Indication: PROSTATIC OPERATION
     Dosage: SPLITTING INTO HALF OF 100MG TABLET 2-3 TIMES/WEEK
     Route: 048
     Dates: start: 20111112

REACTIONS (1)
  - DRUG INEFFECTIVE [None]
